FAERS Safety Report 6302850-3 (Version None)
Quarter: 2009Q3

REPORT INFORMATION
  Report Type: 
  Country: None (occurrence: None)
  Receive Date: 20090810
  Receipt Date: 20090730
  Transmission Date: 20100115
  Serious: Yes (Death, Life-Threatening, Hospitalization, Other)
  Sender: FDA-Public Use
  Company Number: CH-ELI_LILLY_AND_COMPANY-CH200907006780

PATIENT
  Age: 41 Year
  Sex: Female

DRUGS (8)
  1. ZYPREXA [Suspect]
     Indication: BORDERLINE PERSONALITY DISORDER
     Dosage: 5 MG, DAILY (1/D)
     Route: 048
     Dates: start: 20081129, end: 20081218
  2. COCAINE [Concomitant]
     Dosage: UNK, UNKNOWN
     Route: 065
     Dates: start: 20080901
  3. COCAINE [Concomitant]
     Dosage: UNK, UNK
     Route: 042
     Dates: start: 20081218
  4. FLUVOXAMINE MALEATE [Concomitant]
     Indication: DEPRESSION
     Dosage: 100 MG, DAILY (1/D)
     Dates: start: 20081201, end: 20081218
  5. TRITTICO [Concomitant]
     Dosage: 100 MG, DAILY (1/D)
     Dates: end: 20081218
  6. DALMADORM [Concomitant]
     Dosage: 30 MG, DAILY (1/D)
     Route: 048
  7. HEROIN [Concomitant]
     Dates: start: 20080101
  8. ALCOHOL [Concomitant]
     Dates: start: 20080901

REACTIONS (8)
  - ANOXIC ENCEPHALOPATHY [None]
  - CARDIO-RESPIRATORY ARREST [None]
  - COMA [None]
  - DEATH [None]
  - DRUG ABUSE [None]
  - DRUG INTERACTION [None]
  - OBSESSIVE-COMPULSIVE DISORDER [None]
  - OFF LABEL USE [None]
